FAERS Safety Report 17800466 (Version 2)
Quarter: 2020Q3

REPORT INFORMATION
  Report Type: Spontaneous
  Country: DE (occurrence: DE)
  Receive Date: 20200519
  Receipt Date: 20200709
  Transmission Date: 20201102
  Serious: Yes (Hospitalization)
  Sender: FDA-Public Use
  Company Number: DE-ROCHE-2599613

PATIENT
  Age: 14 Year
  Sex: Male
  Weight: 38 kg

DRUGS (10)
  1. TACROLIMUS. [Suspect]
     Active Substance: TACROLIMUS
     Indication: IMMUNOSUPPRESSION
     Dosage: 2 SEPARATED DOSES
     Route: 048
     Dates: start: 201703, end: 20190701
  2. MYCOPHENOLATE MOFETIL. [Suspect]
     Active Substance: MYCOPHENOLATE MOFETIL
     Indication: IMMUNOSUPPRESSION
     Dosage: 2 SEPARATED DOSES
     Route: 048
     Dates: start: 201011
  3. EINSALPHA [Concomitant]
     Indication: CHRONIC KIDNEY DISEASE-MINERAL AND BONE DISORDER
     Route: 048
     Dates: start: 20100630
  4. MAGNESIUM [Concomitant]
     Active Substance: MAGNESIUM
     Indication: BLOOD MAGNESIUM ABNORMAL
     Dosage: 2 SEPARATED DOSES
     Route: 048
     Dates: start: 20180205
  5. PREDNISOLON [PREDNISOLONE] [Suspect]
     Active Substance: PREDNISOLONE
     Indication: IMMUNOSUPPRESSION
     Route: 048
     Dates: start: 201101
  6. BICANORM [Concomitant]
     Active Substance: SODIUM BICARBONATE
     Indication: RENAL TUBULAR ACIDOSIS
     Dosage: 3 SEPARATED DOSES
     Route: 048
     Dates: start: 201009
  7. AMLODIPINE [Concomitant]
     Active Substance: AMLODIPINE BESYLATE
     Indication: HYPERTENSION
     Dosage: 2 SEPARATED DOSES
     Route: 048
     Dates: start: 20170901
  8. FERRO SANOL [Concomitant]
     Active Substance: FERROUS GLYCINE SULFATE
     Indication: IRON DEFICIENCY
     Route: 048
     Dates: start: 201303
  9. REDUCTO?SPEZIAL [Concomitant]
     Indication: CHRONIC KIDNEY DISEASE-MINERAL AND BONE DISORDER
     Dosage: 602MG/360MG   1? 0 ?1 SEIT MINDESTENS 06.2019
     Route: 048
  10. VIGANTOL OIL [Concomitant]
     Indication: VITAMIN D DEFICIENCY
     Dosage: 20000IE/ML
     Route: 048
     Dates: start: 201006

REACTIONS (3)
  - Enteritis [Recovered/Resolved]
  - Decreased appetite [Recovered/Resolved]
  - Abdominal pain [Recovered/Resolved]

NARRATIVE: CASE EVENT DATE: 20190630
